FAERS Safety Report 8879291 (Version 2)
Quarter: 2012Q4

REPORT INFORMATION
  Report Type: 
  Country: US (occurrence: US)
  Receive Date: 20121101
  Receipt Date: 20121116
  Transmission Date: 20130627
  Serious: Yes (Death, Other)
  Sender: FDA-Public Use
  Company Number: US-BIOGENIDEC-2012BI047636

PATIENT
  Age: 58 Year
  Sex: Female

DRUGS (8)
  1. TYSABRI [Suspect]
     Indication: MULTIPLE SCLEROSIS
     Route: 042
     Dates: start: 20110218, end: 20110218
  2. TYSABRI [Suspect]
     Indication: MULTIPLE SCLEROSIS
     Route: 042
     Dates: start: 20110808, end: 20120312
  3. AMANTADINE [Concomitant]
  4. BACLOFEN [Concomitant]
  5. OXYBUTYNIN [Concomitant]
  6. PREDNISONE [Concomitant]
  7. VENLAFAXINE [Concomitant]
  8. PROVIGIL [Concomitant]

REACTIONS (3)
  - Drug ineffective [Unknown]
  - Cardiac arrest [Fatal]
  - Multiple sclerosis [Unknown]
